FAERS Safety Report 5206022-5 (Version None)
Quarter: 2007Q1

REPORT INFORMATION
  Report Type: 
  Country: None (occurrence: None)
  Receive Date: 20070111
  Receipt Date: 20070105
  Transmission Date: 20070707
  Serious: Yes (Death, Hospitalization)
  Sender: FDA-Public Use
  Company Number: FR-MERCK-0610FRA00044

PATIENT
  Age: 19 Year
  Sex: Female

DRUGS (7)
  1. COZAAR [Suspect]
     Indication: HYPERTENSION
     Route: 048
     Dates: end: 20061201
  2. BISOPROLOL FUMARATE [Suspect]
     Indication: HYPERTENSION
     Route: 048
     Dates: end: 20061201
  3. SIROLIMUS [Suspect]
     Indication: PROPHYLAXIS AGAINST TRANSPLANT REJECTION
     Route: 048
     Dates: start: 20050716, end: 20061201
  4. LERCANIDIPINE [Suspect]
     Indication: HYPERTENSION
     Route: 048
     Dates: end: 20061201
  5. RAMIPRIL [Suspect]
     Indication: HYPERTENSION
     Route: 048
     Dates: end: 20061201
  6. MYCOPHENOLATE MOFETIL [Suspect]
     Indication: PROPHYLAXIS AGAINST TRANSPLANT REJECTION
     Route: 048
     Dates: start: 20050716, end: 20061201
  7. CHLORMADINONE ACETATE [Concomitant]
     Route: 048
     Dates: end: 20061201

REACTIONS (2)
  - CYANOSIS [None]
  - PULMONARY HYPERTENSION [None]
